FAERS Safety Report 9110328 (Version 1)
Quarter: 2013Q1

REPORT INFORMATION
  Report Type: Spontaneous
  Country: US (occurrence: US)
  Receive Date: 20130222
  Receipt Date: 20130222
  Transmission Date: 20140127
  Serious: No
  Sender: FDA-Public Use
  Company Number: US-009507513-1302USA009949

PATIENT
  Sex: Female

DRUGS (1)
  1. ASMANEX TWISTHALER [Suspect]
     Indication: ASTHMA
     Dosage: 110 MICROGRAM, TWO INHALATIONS
     Route: 055
     Dates: start: 201301

REACTIONS (3)
  - Anxiety [Recovered/Resolved]
  - Anxiety [Recovered/Resolved]
  - Drug dose omission [Unknown]
